FAERS Safety Report 14712842 (Version 2)
Quarter: 2018Q2

REPORT INFORMATION
  Report Type: Spontaneous
  Country: DE (occurrence: DE)
  Receive Date: 20180404
  Receipt Date: 20180511
  Transmission Date: 20180711
  Serious: Yes (Hospitalization, Other)
  Sender: FDA-Public Use
  Company Number: DE-TEVA-806108GER

PATIENT
  Age: 22 Year
  Sex: Female

DRUGS (5)
  1. REMICADE [Concomitant]
     Active Substance: INFLIXIMAB
     Indication: CROHN^S DISEASE
     Route: 042
     Dates: start: 20170815
  2. CIPROFLOXACIN. [Suspect]
     Active Substance: CIPROFLOXACIN
     Dosage: 1000 MILLIGRAM DAILY;
     Route: 048
     Dates: start: 20170818, end: 20170825
  3. CIPROFLOXACIN. [Suspect]
     Active Substance: CIPROFLOXACIN
     Indication: ABSCESS
     Route: 042
     Dates: start: 20170818, end: 20170825
  4. CEFTRIAXON [Suspect]
     Active Substance: CEFTRIAXONE
     Indication: ABSCESS
     Dosage: 2 GRAM DAILY;
     Route: 042
     Dates: start: 20170811, end: 20170817
  5. CLONT [Concomitant]
     Indication: ABSCESS
     Dosage: 1.5 GRAM DAILY;
     Route: 042
     Dates: start: 20170811, end: 20170817

REACTIONS (1)
  - Acute kidney injury [Not Recovered/Not Resolved]

NARRATIVE: CASE EVENT DATE: 2017
